FAERS Safety Report 6160829-9 (Version None)
Quarter: 2009Q2

REPORT INFORMATION
  Report Type: 
  Country: None (occurrence: None)
  Receive Date: 20090420
  Receipt Date: 20090410
  Transmission Date: 20091009
  Serious: Yes (Death, Other)
  Sender: FDA-Public Use
  Company Number: JP-ROCHE-617376

PATIENT
  Sex: Female
  Weight: 63 kg

DRUGS (9)
  1. PEGASYS [Suspect]
     Indication: HEPATITIS C
     Dosage: DOSE DECREASED
     Route: 058
     Dates: start: 20081118, end: 20081225
  2. PEGASYS [Suspect]
     Route: 058
     Dates: start: 20081230, end: 20090127
  3. PEGASYS [Suspect]
     Route: 058
     Dates: start: 20090210, end: 20090217
  4. PEGASYS [Suspect]
     Route: 058
     Dates: start: 20090303, end: 20090303
  5. PEGASYS [Suspect]
     Route: 058
     Dates: start: 20090324, end: 20090324
  6. COPEGUS [Suspect]
     Indication: HEPATITIS C
     Route: 048
     Dates: start: 20081118, end: 20090326
  7. NORVASC [Concomitant]
     Route: 048
     Dates: end: 20090326
  8. GASTER [Concomitant]
     Route: 048
     Dates: end: 20090326
  9. LIVACT [Concomitant]
     Route: 048
     Dates: end: 20090326

REACTIONS (6)
  - ALOPECIA [None]
  - HEPATIC FUNCTION ABNORMAL [None]
  - NEUTROPHIL COUNT DECREASED [None]
  - PLATELET COUNT DECREASED [None]
  - PRURITUS [None]
  - SUBARACHNOID HAEMORRHAGE [None]
